FAERS Safety Report 4780525-X (Version None)
Quarter: 2005Q3

REPORT INFORMATION
  Report Type: 
  Country: None (occurrence: None)
  Receive Date: 20050926
  Receipt Date: 20050913
  Transmission Date: 20060218
  Serious: Yes (Hospitalization)
  Sender: FDA-Public Use
  Company Number: MK200509-0163-1

PATIENT
  Age: 77 Year
  Sex: Female

DRUGS (1)
  1. OPTIRAY 320 [Suspect]
     Indication: COMPUTERISED TOMOGRAM ABDOMEN
     Dosage: 100 ML, ONTE TIME, IV
     Route: 042
     Dates: start: 20050912, end: 20050912

REACTIONS (7)
  - BLISTER [None]
  - EXTRAVASATION [None]
  - NECROSIS [None]
  - OEDEMA PERIPHERAL [None]
  - PROCEDURAL COMPLICATION [None]
  - SKIN DISCOLOURATION [None]
  - SKIN EXFOLIATION [None]
